FAERS Safety Report 5026570-0 (Version None)
Quarter: 2006Q2

REPORT INFORMATION
  Report Type: 
  Country: None (occurrence: None)
  Receive Date: 20060615
  Receipt Date: 20060113
  Transmission Date: 20061013
  Serious: Yes (Hospitalization)
  Sender: FDA-Public Use
  Company Number: US-ROCHE-432362

PATIENT
  Age: 12 Year
  Sex: Female
  Weight: 53.5 kg

DRUGS (4)
  1. ACCUTANE [Suspect]
     Route: 048
     Dates: start: 20011023, end: 20020413
  2. ACCUTANE [Suspect]
     Route: 048
     Dates: start: 20020724, end: 20021124
  3. ZYRTEC-D 12 HOUR [Concomitant]
     Dosage: DOSAGE REPORTED ON 16 APRIL 2003 1 TAB BID. DOSAGE REPORTED ON 20 MAY 2003 ^INCREASE FOR QD TO BID^.
     Route: 048
  4. SINGULAIR [Concomitant]
     Route: 048

REACTIONS (12)
  - COLITIS [None]
  - CROHN'S DISEASE [None]
  - GASTROINTESTINAL HAEMORRHAGE [None]
  - HEADACHE [None]
  - ILL-DEFINED DISORDER [None]
  - INFLAMMATORY BOWEL DISEASE [None]
  - INJURY [None]
  - IRON DEFICIENCY ANAEMIA [None]
  - PHARYNGITIS [None]
  - RHINITIS [None]
  - SINUSITIS [None]
  - STREPTOCOCCAL INFECTION [None]
